FAERS Safety Report 14756268 (Version 1)
Quarter: 2018Q2

REPORT INFORMATION
  Report Type: Spontaneous
  Country: US (occurrence: US)
  Receive Date: 20180407
  Receipt Date: 20180407
  Transmission Date: 20180711
  Serious: Yes (Other)
  Sender: FDA-Public Use
  Company Number: None

PATIENT
  Age: 26 Year
  Sex: Male
  Weight: 60.75 kg

DRUGS (2)
  1. DESONIDE CREAM 0.05% [Suspect]
     Active Substance: DESONIDE
     Indication: LICHEN PLANUS
     Dosage: ?          QUANTITY:1 CREAM;?
     Route: 061
     Dates: start: 20171204, end: 20171214
  2. ISOTRETINOIN. [Concomitant]
     Active Substance: ISOTRETINOIN

REACTIONS (6)
  - Skin wrinkling [None]
  - Genital pain [None]
  - Dyspareunia [None]
  - Skin atrophy [None]
  - Dry skin [None]
  - Genital discomfort [None]

NARRATIVE: CASE EVENT DATE: 20171207
